FAERS Safety Report 4632724-5 (Version None)
Quarter: 2005Q2

REPORT INFORMATION
  Report Type: 
  Country: None (occurrence: None)
  Receive Date: 20050412
  Receipt Date: 20050405
  Transmission Date: 20051028
  Serious: Yes (Other)
  Sender: FDA-Public Use
  Company Number: 200511022JP

PATIENT
  Sex: Female

DRUGS (1)
  1. TAXOTERE [Suspect]
     Indication: BREAST CANCER
     Route: 041

REACTIONS (2)
  - OEDEMA [None]
  - SCLERODERMA [None]
